FAERS Safety Report 8722341 (Version 3)
Quarter: 2013Q4

REPORT INFORMATION
  Report Type: Spontaneous
  Country: US (occurrence: US)
  Receive Date: 20120814
  Receipt Date: 20131031
  Transmission Date: 20140711
  Serious: Yes (Other)
  Sender: FDA-Public Use
  Company Number: US-009507513-1208USA004169

PATIENT
  Sex: Female
  Weight: 70.3 kg

DRUGS (6)
  1. IMPLANON [Suspect]
     Indication: CONTRACEPTION
     Dosage: 1 DF, UNK
     Dates: start: 201008
  2. CELLCEPT [Concomitant]
     Dosage: 3 DF, QD
  3. SIMVASTATIN TABLETS, USP [Concomitant]
     Indication: BLOOD CHOLESTEROL INCREASED
     Dosage: 40 MG, QD
  4. IRBESARTAN [Concomitant]
     Dosage: 300 MG, QD
  5. METOPROLOL [Concomitant]
     Dosage: 50 MG, QD
  6. PREDNISONE [Concomitant]
     Dosage: 10 MG, QD

REACTIONS (1)
  - Systemic lupus erythematosus [Not Recovered/Not Resolved]
